FAERS Safety Report 9540622 (Version 1)
Quarter: 2013Q3

REPORT INFORMATION
  Report Type: Spontaneous
  Country: US (occurrence: US)
  Receive Date: 20130920
  Receipt Date: 20130920
  Transmission Date: 20140515
  Serious: Yes (Hospitalization)
  Sender: FDA-Public Use
  Company Number: US-FRI-1000048935

PATIENT
  Age: 67 Year
  Sex: Female

DRUGS (17)
  1. DALIRESP [Suspect]
     Indication: CHRONIC OBSTRUCTIVE PULMONARY DISEASE
     Dosage: 500 MCG
     Route: 048
     Dates: start: 20120222
  2. DALIRESP [Suspect]
     Indication: ASTHMA
  3. DALIRESP [Suspect]
     Indication: BRONCHITIS CHRONIC
  4. DALIRESP [Suspect]
     Indication: CHRONIC OBSTRUCTIVE PULMONARY DISEASE
     Dosage: 500 MCG
     Route: 048
     Dates: start: 20130606
  5. DALIRESP [Suspect]
     Indication: ASTHMA
  6. DALIRESP [Suspect]
     Indication: BRONCHITIS CHRONIC
  7. SYMBICORT [Concomitant]
     Dosage: 160/4.5 MG 2 PUFFS BID
  8. SPIRIVA [Concomitant]
     Dosage: 1 INHALATION PER DAY
  9. TESSALON PERLES [Concomitant]
     Indication: COUGH
     Dosage: 200 MG PRN
  10. XOPENEX [Concomitant]
  11. VITAMIN B-12 [Concomitant]
  12. NORVASC [Concomitant]
     Dosage: 10 MG
  13. XANAX [Concomitant]
     Dosage: 0.5 MG BID PRN
  14. HYZAAR [Concomitant]
     Dosage: 100/12.5 MG DAILY
  15. PAXIL [Concomitant]
     Dosage: 20 MG
  16. PREVACID [Concomitant]
     Dosage: 60 MG
  17. CARDIZEM [Concomitant]
     Dosage: 120 MG

REACTIONS (2)
  - Chronic obstructive pulmonary disease [Recovered/Resolved]
  - Pneumonia [Recovered/Resolved]
